FAERS Safety Report 17142845 (Version 1)
Quarter: 2019Q4

REPORT INFORMATION
  Report Type: Spontaneous
  Country: BE (occurrence: BE)
  Receive Date: 20191211
  Receipt Date: 20191211
  Transmission Date: 20200122
  Serious: Yes (Hospitalization)
  Sender: FDA-Public Use
  Company Number: NVSC2019BE015692

PATIENT
  Age: 27 Year
  Sex: Male

DRUGS (1)
  1. COSENTYX [Suspect]
     Active Substance: SECUKINUMAB
     Indication: PRODUCT USED FOR UNKNOWN INDICATION
     Dosage: UNK
     Route: 065
     Dates: end: 20191101

REACTIONS (17)
  - Night sweats [Not Recovered/Not Resolved]
  - Lymphadenopathy [Unknown]
  - Gingival bleeding [Not Recovered/Not Resolved]
  - Gingival swelling [Not Recovered/Not Resolved]
  - Tooth discolouration [Not Recovered/Not Resolved]
  - Gingival oedema [Not Recovered/Not Resolved]
  - Fear [Unknown]
  - Pain [Not Recovered/Not Resolved]
  - Malaise [Recovering/Resolving]
  - Tongue coated [Not Recovered/Not Resolved]
  - Diarrhoea [Unknown]
  - Gingival ulceration [Not Recovered/Not Resolved]
  - Gingival erosion [Not Recovered/Not Resolved]
  - Affective disorder [Unknown]
  - Hyperhidrosis [Recovering/Resolving]
  - Fatigue [Not Recovered/Not Resolved]
  - Poor quality sleep [Not Recovered/Not Resolved]
